FAERS Safety Report 4514761-4 (Version None)
Quarter: 2004Q4

REPORT INFORMATION
  Report Type: 
  Country: None (occurrence: None)
  Receive Date: 20041201
  Receipt Date: 20041119
  Transmission Date: 20050328
  Serious: Yes (Other)
  Sender: FDA-Public Use
  Company Number: US-JNJFOC-20040805315

PATIENT
  Sex: Female
  Weight: 62.6 kg

DRUGS (7)
  1. REMICADE [Suspect]
     Indication: RHEUMATOID ARTHRITIS
     Route: 042
  2. ARAVA [Concomitant]
     Indication: RHEUMATOID ARTHRITIS
     Dosage: ONCE OR TWICE DAILY
  3. HYDROXYCHLORIDE [Concomitant]
     Dosage: 4 OR 5 YEARS
  4. BEXTRA [Concomitant]
     Indication: RHEUMATOID ARTHRITIS
  5. HYDROCODONE [Concomitant]
     Indication: PAIN
  6. FERROUS SULFATE TAB [Concomitant]
  7. CORAL CALCIUM [Concomitant]
     Indication: RHEUMATOID ARTHRITIS

REACTIONS (5)
  - BACK PAIN [None]
  - BLOOD PRESSURE INCREASED [None]
  - INFUSION RELATED REACTION [None]
  - NAUSEA [None]
  - NECK PAIN [None]
